FAERS Safety Report 20027587 (Version 1)
Quarter: 2021Q4

REPORT INFORMATION
  Report Type: Spontaneous
  Country: DE (occurrence: DE)
  Receive Date: 20211103
  Receipt Date: 20211103
  Transmission Date: 20220303
  Serious: Yes (Other)
  Sender: FDA-Public Use
  Company Number: DE-DCGMA-21193891

PATIENT
  Age: 65 Year
  Sex: Female

DRUGS (8)
  1. OLANZAPINE [Suspect]
     Active Substance: OLANZAPINE
     Indication: Product used for unknown indication
     Route: 048
     Dates: start: 20210908
  2. TAVOR (LORAZEPAM) [Suspect]
     Active Substance: LORAZEPAM
     Indication: Product used for unknown indication
     Dosage: EVERY DAYS 3 SEPARATED DOSES
     Dates: start: 20210908
  3. RISPERIDONE [Suspect]
     Active Substance: RISPERIDONE
     Indication: Product used for unknown indication
     Dates: start: 20210905
  4. SIMVASTATIN [Concomitant]
     Active Substance: SIMVASTATIN
     Indication: Product used for unknown indication
  5. IBUPROFEN [Concomitant]
     Active Substance: IBUPROFEN
     Indication: Product used for unknown indication
  6. PANTOPRAZOLE [Concomitant]
     Active Substance: PANTOPRAZOLE
     Indication: Product used for unknown indication
  7. ACETAMINOPHEN [Concomitant]
     Active Substance: ACETAMINOPHEN
     Indication: Product used for unknown indication
  8. ASPIRIN [Concomitant]
     Active Substance: ASPIRIN
     Indication: Product used for unknown indication

REACTIONS (17)
  - Head discomfort [Unknown]
  - Visual impairment [Unknown]
  - Food craving [Unknown]
  - Headache [Unknown]
  - Paraesthesia [Unknown]
  - Muscle twitching [Unknown]
  - Diarrhoea [Unknown]
  - Abdominal pain [Unknown]
  - Pain in extremity [Unknown]
  - Gait disturbance [Unknown]
  - Polyuria [Unknown]
  - Asthenia [Unknown]
  - Hypotonia [Unknown]
  - Dizziness [Unknown]
  - Ataxia [Unknown]
  - Hyperhidrosis [Unknown]
  - Overdose [Unknown]

NARRATIVE: CASE EVENT DATE: 20211001
